FAERS Safety Report 7894471-6 (Version None)
Quarter: 2011Q4

REPORT INFORMATION
  Report Type: 
  Country: None (occurrence: None)
  Receive Date: 20111106
  Receipt Date: 20110816
  Transmission Date: 20120403
  Serious: No
  Sender: FDA-Public Use
  Company Number: US-AMGEN-USASP2011041575

PATIENT
  Age: 49 Year
  Sex: Male

DRUGS (10)
  1. PREDNISONE [Concomitant]
     Dosage: 5 MG, UNK
  2. PHENOBARB                          /00023201/ [Concomitant]
     Dosage: 30 MG, UNK
  3. FISH OIL [Concomitant]
  4. METHOTREXATE [Concomitant]
     Dosage: 2.5 MG, UNK
  5. GINGER                             /01646602/ [Concomitant]
  6. HYDROCHLOROTH [Concomitant]
     Dosage: 12.5 MG, UNK
  7. CALCIUM [Concomitant]
     Dosage: 600 MG, UNK
  8. ENBREL [Suspect]
     Indication: PRODUCT USED FOR UNKNOWN INDICATION
     Dosage: 50 MG, QWK
  9. FOLIC ACID [Concomitant]
     Dosage: 1 MG, UNK
  10. TEGRETOL [Concomitant]
     Dosage: 200 MG, UNK

REACTIONS (3)
  - RASH [None]
  - URTICARIA [None]
  - PRURITUS [None]
